FAERS Safety Report 6741127-9 (Version None)
Quarter: 2010Q2

REPORT INFORMATION
  Report Type: 
  Country: None (occurrence: None)
  Receive Date: 20100526
  Receipt Date: 20100517
  Transmission Date: 20101027
  Serious: Yes (Hospitalization)
  Sender: FDA-Public Use
  Company Number: JP-ASTRAZENECA-2010SE22301

PATIENT
  Age: 68 Year
  Sex: Male

DRUGS (9)
  1. ECARD HD [Suspect]
     Indication: HYPERTENSION
     Route: 048
     Dates: start: 20100401, end: 20100401
  2. TAKEPRON OD TABLETS 15 [Concomitant]
     Route: 048
  3. LIPITOR [Concomitant]
     Route: 048
  4. BUFFERIN [Concomitant]
     Route: 048
  5. LASIX [Concomitant]
     Route: 065
  6. PLAVIX [Concomitant]
     Route: 048
  7. ARTIST [Concomitant]
     Route: 048
  8. EPADEL [Concomitant]
     Route: 048
  9. FRANDOL TAPE [Concomitant]
     Route: 062

REACTIONS (1)
  - RESPIRATORY FAILURE [None]
